FAERS Safety Report 6498019-2 (Version None)
Quarter: 2009Q4

REPORT INFORMATION
  Report Type: 
  Country: None (occurrence: None)
  Receive Date: 20091215
  Receipt Date: 20091204
  Transmission Date: 20100525
  Serious: Yes (Other)
  Sender: FDA-Public Use
  Company Number: PHHY2009CA34569

PATIENT
  Sex: Female

DRUGS (8)
  1. ACLASTA [Suspect]
     Indication: OSTEOPOROSIS
     Dosage: 5 MG, UNK
     Route: 042
     Dates: start: 20090810
  2. NORVASC [Concomitant]
     Dosage: 75 MG/DAY
  3. HYDRA-ZIDE [Concomitant]
  4. LOSEC                                   /CAN/ [Concomitant]
  5. COZAAR [Concomitant]
  6. SERAX [Concomitant]
  7. CALCIUM [Concomitant]
     Dosage: 500 MG/DAY
  8. VITAMIN D [Concomitant]
     Dosage: 2 TABLETS/DAY

REACTIONS (11)
  - ABDOMINAL PAIN UPPER [None]
  - FATIGUE [None]
  - INFLUENZA LIKE ILLNESS [None]
  - MOUTH ULCERATION [None]
  - MYALGIA [None]
  - NAUSEA [None]
  - PAIN [None]
  - PAIN IN EXTREMITY [None]
  - POST PROCEDURAL COMPLICATION [None]
  - VOMITING [None]
  - VULVOVAGINAL PAIN [None]
